FAERS Safety Report 5986132-5 (Version None)
Quarter: 2008Q4

REPORT INFORMATION
  Report Type: 
  Country: None (occurrence: None)
  Receive Date: 20081205
  Receipt Date: 20081205
  Transmission Date: 20090506
  Serious: Yes (Other)
  Sender: FDA-Public Use
  Company Number: None

PATIENT
  Age: 49 Year
  Sex: Male
  Weight: 81.6475 kg

DRUGS (2)
  1. SULFAMETHOXAZOLE AND TRIMETHOPRIM [Suspect]
     Indication: EPIDIDYMITIS
     Dosage: 1 CAPSULE TWICE A DAY PO
     Route: 048
     Dates: start: 20081123, end: 20081124
  2. SULFAMETHOXAZOLE AND TRIMETHOPRIM [Suspect]
     Indication: EPIDIDYMITIS
     Dosage: 1 CAPSULE TWICE A DAY PO
     Route: 048
     Dates: start: 20081130, end: 20081130

REACTIONS (13)
  - ANOREXIA [None]
  - ASTHENIA [None]
  - BURNING SENSATION [None]
  - CHILLS [None]
  - DIZZINESS [None]
  - HEADACHE [None]
  - HYPOPHAGIA [None]
  - IMPAIRED WORK ABILITY [None]
  - INSOMNIA [None]
  - PAIN IN EXTREMITY [None]
  - PYREXIA [None]
  - VIRAL INFECTION [None]
  - VOMITING [None]
